FAERS Safety Report 12344299 (Version 1)
Quarter: 2016Q2

REPORT INFORMATION
  Report Type: Spontaneous
  Country: KR (occurrence: KR)
  Receive Date: 20160507
  Receipt Date: 20160507
  Transmission Date: 20160815
  Serious: Yes (Death)
  Sender: FDA-Public Use
  Company Number: KR-ACCORD-040294

PATIENT
  Age: 15 Year
  Sex: Male

DRUGS (2)
  1. GEMCITABINE/GEMCITABINE HYDROCHLORIDE [Suspect]
     Active Substance: GEMCITABINE\GEMCITABINE HYDROCHLORIDE
     Indication: OSTEOSARCOMA
     Dosage: FOUR COURSES
  2. DOCETAXEL. [Suspect]
     Active Substance: DOCETAXEL
     Indication: OSTEOSARCOMA
     Dosage: FOUR COURSES

REACTIONS (6)
  - Pleural effusion [None]
  - Treatment failure [Fatal]
  - Pneumonia [None]
  - Respiratory failure [Fatal]
  - Osteosarcoma [None]
  - Malignant neoplasm progression [None]
